FAERS Safety Report 8588597-1 (Version None)
Quarter: 2012Q3

REPORT INFORMATION
  Report Type: 
  Country: None (occurrence: None)
  Receive Date: 20120813
  Receipt Date: 20120806
  Transmission Date: 20120928
  Serious: Yes (Hospitalization, Other)
  Sender: FDA-Public Use
  Company Number: US-JNJFOC-20100401168

PATIENT
  Sex: Female

DRUGS (1)
  1. LEVAQUIN [Suspect]
     Indication: URINARY TRACT INFECTION
     Route: 048
     Dates: start: 19990218, end: 20090829

REACTIONS (7)
  - TENDON DISORDER [None]
  - JOINT INJURY [None]
  - OSTEOARTHRITIS [None]
  - DEPRESSION [None]
  - CONDITION AGGRAVATED [None]
  - ROTATOR CUFF SYNDROME [None]
  - MENTAL DISORDER [None]
